FAERS Safety Report 22939435 (Version 10)
Quarter: 2023Q4

REPORT INFORMATION
  Report Type: Spontaneous
  Country: CA (occurrence: CA)
  Receive Date: 20230913
  Receipt Date: 20231228
  Transmission Date: 20240110
  Serious: Yes (Other)
  Sender: FDA-Public Use
  Company Number: CA-PFIZER INC-202300295281

PATIENT
  Age: 45 Year
  Sex: Male
  Weight: 105.9 kg

DRUGS (12)
  1. ABRILADA [Suspect]
     Active Substance: ADALIMUMAB-AFZB
     Indication: Crohn^s disease
     Dosage: 1 DF, WEEK 0 160 MG, WEEK 2 80 MG AND THEN 40 MG EVERY OTHER WEEK - PREFILLED PEN
     Route: 058
     Dates: start: 20220920, end: 20221111
  2. ABRILADA [Suspect]
     Active Substance: ADALIMUMAB-AFZB
     Dosage: 1 DF, REINDUCE, WEEK 0 160 MG, WEEK 2 80 MG AND THEN 40 EVERY OTHER WEEK
     Route: 058
     Dates: start: 20230315, end: 20230509
  3. ABRILADA [Suspect]
     Active Substance: ADALIMUMAB-AFZB
     Dosage: 40 MG, WEEKLY, PREFILLED PEN
     Route: 058
     Dates: start: 20230707, end: 20230830
  4. ABRILADA [Suspect]
     Active Substance: ADALIMUMAB-AFZB
     Dosage: 40 MG, WEEKLY
     Route: 058
     Dates: start: 20230830
  5. ABRILADA [Suspect]
     Active Substance: ADALIMUMAB-AFZB
     Dosage: 40 MG, WEEKLY, PREFILLED PEN (SUPPOSED TO RECEIVED 80MG)
     Route: 058
     Dates: start: 20230906
  6. ABRILADA [Suspect]
     Active Substance: ADALIMUMAB-AFZB
     Dosage: 80 MG, WEEKLY
     Route: 058
     Dates: start: 20230906
  7. ABRILADA [Suspect]
     Active Substance: ADALIMUMAB-AFZB
     Dosage: 80MG AFTER 4 WEEKS AND 2 DAYS (80 MG, WEEKLY, PREFILLED PEN
     Route: 058
     Dates: start: 20231006
  8. ABRILADA [Suspect]
     Active Substance: ADALIMUMAB-AFZB
     Dosage: 80 MG, WEEKLY
     Route: 058
     Dates: start: 20231013
  9. ABRILADA [Suspect]
     Active Substance: ADALIMUMAB-AFZB
     Dosage: 80 MG, WEEKLY
     Route: 058
     Dates: start: 20231020
  10. ABRILADA [Suspect]
     Active Substance: ADALIMUMAB-AFZB
     Dosage: 80 MG, WEEKLY
     Route: 058
     Dates: start: 20231027
  11. ABRILADA [Suspect]
     Active Substance: ADALIMUMAB-AFZB
     Dosage: 5 DAYS (PRESCRIBED 80 MG WEEKLY)
     Route: 058
     Dates: start: 20231101
  12. ABRILADA [Suspect]
     Active Substance: ADALIMUMAB-AFZB
     Dosage: 80 MG, WEEKLY, PREFILLED PEN (DOSE ADMINISTERED NOT PROVIDED, AFTER 6 WEEKS)
     Route: 058
     Dates: start: 20231213

REACTIONS (16)
  - Drainage [Not Recovered/Not Resolved]
  - Condition aggravated [Not Recovered/Not Resolved]
  - Lower respiratory tract infection [Not Recovered/Not Resolved]
  - Therapeutic response shortened [Unknown]
  - Nasal congestion [Unknown]
  - Discomfort [Recovering/Resolving]
  - Malaise [Not Recovered/Not Resolved]
  - Body temperature increased [Unknown]
  - Pyrexia [Recovered/Resolved]
  - Palpitations [Recovered/Resolved]
  - Pain [Unknown]
  - Pain in extremity [Unknown]
  - Sinusitis [Recovered/Resolved]
  - Off label use [Unknown]
  - Off label use [Unknown]
  - Incorrect dose administered [Unknown]

NARRATIVE: CASE EVENT DATE: 20230101
